FAERS Safety Report 10206894 (Version 1)
Quarter: 2014Q2

REPORT INFORMATION
  Report Type: Spontaneous
  Country: IT (occurrence: IT)
  Receive Date: 20140530
  Receipt Date: 20140530
  Transmission Date: 20141212
  Serious: Yes (Other)
  Sender: FDA-Public Use
  Company Number: IT-PFIZER INC-2014144720

PATIENT
  Age: 56 Year
  Sex: Male

DRUGS (3)
  1. CARDURA [Suspect]
     Indication: HYPERTENSION
     Dosage: 2 MG, SINGLE
     Route: 048
     Dates: start: 20140424, end: 20140424
  2. ENAPREN [Concomitant]
     Indication: HYPERTENSION
     Dosage: 1 DF, UNK
     Route: 048
  3. ENAPREN [Concomitant]
     Dosage: 20 MG, UNK
     Route: 048

REACTIONS (5)
  - Hyperhidrosis [Recovered/Resolved]
  - Orthostatic hypotension [Recovered/Resolved]
  - Pallor [Recovered/Resolved]
  - Tonic clonic movements [Recovered/Resolved]
  - Syncope [Recovered/Resolved]
